FAERS Safety Report 12960371 (Version 1)
Quarter: 2016Q4

REPORT INFORMATION
  Report Type: Spontaneous
  Country: US (occurrence: US)
  Receive Date: 20161121
  Receipt Date: 20161121
  Transmission Date: 20170207
  Serious: No
  Sender: FDA-Public Use
  Company Number: ALCN2013US003536

PATIENT
  Age: 34 Year
  Sex: Female

DRUGS (1)
  1. TOBRADEX [Suspect]
     Active Substance: DEXAMETHASONE\TOBRAMYCIN
     Indication: EYELID CYST
     Dosage: UNK
     Route: 047

REACTIONS (7)
  - Eye pain [Recovered/Resolved]
  - Exposure during pregnancy [Unknown]
  - Drug ineffective for unapproved indication [Not Recovered/Not Resolved]
  - Eyelid cyst [Not Recovered/Not Resolved]
  - Eye infection [Recovered/Resolved]
  - Condition aggravated [Unknown]
  - Photophobia [Recovered/Resolved]

NARRATIVE: CASE EVENT DATE: 201303
